FAERS Safety Report 4708611-0 (Version None)
Quarter: 2005Q3

REPORT INFORMATION
  Report Type: 
  Country: None (occurrence: None)
  Receive Date: 20050706
  Receipt Date: 20050630
  Transmission Date: 20060218
  Serious: Yes (Death, Hospitalization)
  Sender: FDA-Public Use
  Company Number: SEWYE789401JUL05

PATIENT
  Age: 61 Year
  Sex: Male

DRUGS (2)
  1. RAPAMUNE [Suspect]
     Indication: LIVER TRANSPLANT
     Dosage: 3 MG PER DAY; ORAL
     Route: 048
     Dates: start: 20050413
  2. MERONEM (MEROPENEM) [Concomitant]

REACTIONS (7)
  - BILIARY TRACT INFECTION [None]
  - GASTROINTESTINAL HAEMORRHAGE [None]
  - HAEMOBILIA [None]
  - MELAENA [None]
  - NAUSEA [None]
  - PYREXIA [None]
  - VOMITING [None]
